FAERS Safety Report 25050532 (Version 3)
Quarter: 2025Q3

REPORT INFORMATION
  Report Type: Spontaneous
  Country: EU (occurrence: EU)
  Receive Date: 20250307
  Receipt Date: 20250809
  Transmission Date: 20251020
  Serious: Yes (Other)
  Sender: ALEXION PHARMACEUTICALS
  Company Number: EU-ARISTO PHARMA-ESOM202502131

PATIENT
  Age: 85 Year

DRUGS (20)
  1. ESOMEPRAZOLE [Suspect]
     Active Substance: ESOMEPRAZOLE
     Indication: Product used for unknown indication
     Dosage: 1 DOSAGE FORM, 1/DAY
     Route: 065
  2. WARFARIN [Concomitant]
     Active Substance: WARFARIN
     Indication: Product used for unknown indication
     Dosage: 5 MILLIGRAM, 1/DAY
  3. WARFARIN [Concomitant]
     Active Substance: WARFARIN
     Dosage: 3 MILLIGRAM, 1/DAY
  4. VALSARTAN [Concomitant]
     Active Substance: VALSARTAN
     Indication: Product used for unknown indication
     Dosage: 1 DOSAGE FORM, 1/DAY
  5. PROPAFENONE [Concomitant]
     Active Substance: PROPAFENONE
     Indication: Product used for unknown indication
     Dosage: 2 DOSAGE FORM, 1/DAY
  6. INDAPAMIDE [Concomitant]
     Active Substance: INDAPAMIDE
     Indication: Product used for unknown indication
     Dosage: 1 DOSAGE FORM, 1/DAY
  7. SOLIFENACIN SUCCINATE [Concomitant]
     Active Substance: SOLIFENACIN SUCCINATE
     Indication: Product used for unknown indication
     Dosage: 5 MILLIGRAM, 1/DAY
  8. MAGNESIUM CARBONATE [Concomitant]
     Active Substance: MAGNESIUM CARBONATE
     Indication: Product used for unknown indication
     Dosage: 2 DOSAGE FORM, 1/DAY
  9. VINPOCETINE [Concomitant]
     Active Substance: VINPOCETINE
     Indication: Product used for unknown indication
     Dosage: 1 DOSAGE FORM, 1/DAY
  10. DONEPEZIL [Concomitant]
     Active Substance: DONEPEZIL
     Indication: Product used for unknown indication
     Dosage: 1 DOSAGE FORM, 1/DAY
  11. GINKGO [Concomitant]
     Active Substance: GINKGO
     Indication: Product used for unknown indication
     Dosage: 1 DOSAGE FORM, 1/DAY
  12. LACTULOSE [Concomitant]
     Active Substance: LACTULOSE
     Indication: Product used for unknown indication
     Dosage: 1 DOSAGE FORM, 1/DAY
  13. BISACODYL [Concomitant]
     Active Substance: BISACODYL
     Indication: Product used for unknown indication
     Dosage: 1 DOSAGE FORM, 1/DAY
  14. AMLODIPINE [Concomitant]
     Active Substance: AMLODIPINE BESYLATE
     Indication: Product used for unknown indication
     Dosage: 1 DOSAGE FORM, 1/DAY
  15. EZETIMIBE\ROSUVASTATIN [Concomitant]
     Active Substance: EZETIMIBE\ROSUVASTATIN
     Indication: Product used for unknown indication
     Dosage: 1 DOSAGE FORM, 1/DAY
  16. FLUTICASONE PROPIONATE\SALMETEROL XINAFOATE [Concomitant]
     Active Substance: FLUTICASONE PROPIONATE\SALMETEROL XINAFOATE
     Indication: Product used for unknown indication
  17. GLYCOPYRRONII BROMIDUM [Concomitant]
     Indication: Product used for unknown indication
  18. ACETAMINOPHEN\TRAMADOL HYDROCHLORIDE [Concomitant]
     Active Substance: ACETAMINOPHEN\TRAMADOL HYDROCHLORIDE
     Indication: Product used for unknown indication
     Dosage: 1 DOSAGE FORM, 1/DAY
  19. RADIX VALERIANAE [Concomitant]
     Indication: Hypertension
  20. METOPROLOLI SUCCINAS (2:1) [Concomitant]
     Indication: Product used for unknown indication
     Dosage: 1 DOSAGE FORM, 2/DAY

REACTIONS (1)
  - Prostate cancer [Unknown]
